FAERS Safety Report 5907471-X (Version None)
Quarter: 2008Q4

REPORT INFORMATION
  Report Type: 
  Country: None (occurrence: None)
  Receive Date: 20081003
  Receipt Date: 20080925
  Transmission Date: 20090506
  Serious: Yes (Other)
  Sender: FDA-Public Use
  Company Number: B0539227A

PATIENT
  Age: 12 Year
  Sex: Female

DRUGS (4)
  1. FLUTICASONE PROPIONATE [Suspect]
     Indication: ASTHMA
     Dosage: 500MCG TWICE PER DAY
     Route: 055
  2. BETA AGONIST [Concomitant]
  3. BUDESONIDE [Concomitant]
  4. FORMOTEROL FUMARATE [Concomitant]

REACTIONS (9)
  - ADRENAL INSUFFICIENCY [None]
  - BRONCHITIS CHRONIC [None]
  - COUGH [None]
  - CUSHINGOID [None]
  - FATIGUE [None]
  - HYPERADRENOCORTICISM [None]
  - MENTAL DISORDER [None]
  - NAUSEA [None]
  - RESTLESSNESS [None]
